FAERS Safety Report 10237038 (Version 1)
Quarter: 2014Q2

REPORT INFORMATION
  Report Type: Spontaneous
  Country: US (occurrence: US)
  Receive Date: 20140613
  Receipt Date: 20140613
  Transmission Date: 20141212
  Serious: Yes (Other)
  Sender: FDA-Public Use
  Company Number: US-AMGEN-USASP2014042522

PATIENT
  Age: 50 Year
  Sex: Female

DRUGS (6)
  1. PROLIA [Suspect]
     Indication: OSTEOPENIA
     Dosage: 60 MG, UNK
     Route: 065
     Dates: start: 20140528
  2. ARIMIDEX [Concomitant]
     Indication: BREAST CANCER
     Dosage: UNK
     Dates: start: 20140523
  3. CALCIUM [Concomitant]
  4. VITAMIN D3 [Concomitant]
     Indication: DYSPEPSIA
  5. VITAMIN B12                        /00056201/ [Concomitant]
  6. BIOTIN [Concomitant]

REACTIONS (3)
  - Chest pain [Recovered/Resolved]
  - Dyspepsia [Recovered/Resolved]
  - Abdominal pain upper [Recovered/Resolved]
